FAERS Safety Report 8645601 (Version 2)
Quarter: 2012Q4

REPORT INFORMATION
  Report Type: 
  Country: US (occurrence: US)
  Receive Date: 20120702
  Receipt Date: 20121120
  Transmission Date: 20130627
  Serious: Yes (Hospitalization)
  Sender: FDA-Public Use
  Company Number: US-GILEAD-2012-0055407

PATIENT
  Sex: Female

DRUGS (2)
  1. LETAIRIS [Suspect]
     Indication: PULMONARY HYPERTENSION
     Dosage: 10 mg, UNK
     Route: 048
     Dates: start: 20100325
  2. LETAIRIS [Suspect]
     Indication: UNEVALUABLE EVENT

REACTIONS (8)
  - Urinary tract infection [Unknown]
  - Hypotension [Unknown]
  - Gastroenteritis viral [Unknown]
  - Dehydration [Unknown]
  - Anaemia [Unknown]
  - Transfusion [Unknown]
  - Syncope [Unknown]
  - Pollakiuria [Unknown]
